FAERS Safety Report 5677118-9 (Version None)
Quarter: 2008Q1

REPORT INFORMATION
  Report Type: 
  Country: None (occurrence: None)
  Receive Date: 20080324
  Receipt Date: 20080313
  Transmission Date: 20080703
  Serious: Yes (Other)
  Sender: FDA-Public Use
  Company Number: HQWYE210517JUL04

PATIENT
  Sex: Female
  Weight: 74.91 kg

DRUGS (3)
  1. PREMPRO [Suspect]
     Dosage: UNKNOWN
     Route: 048
     Dates: start: 19960724, end: 20011201
  2. PROVERA [Suspect]
     Dosage: UNKNOWN
     Route: 048
     Dates: end: 20010101
  3. OGEN [Suspect]
     Dosage: UNKNOWN
     Route: 048
     Dates: end: 20010101

REACTIONS (2)
  - BREAST CANCER METASTATIC [None]
  - DEPRESSION [None]
